FAERS Safety Report 10007426 (Version 1)
Quarter: 2014Q1

REPORT INFORMATION
  Report Type: Spontaneous
  Country: US (occurrence: US)
  Receive Date: 20140313
  Receipt Date: 20140313
  Transmission Date: 20141002
  Serious: Yes (Other)
  Sender: FDA-Public Use
  Company Number: US-BAXTER-2014BAX011320

PATIENT
  Sex: Male

DRUGS (1)
  1. GAMMAGARD S/D [Suspect]
     Indication: BRUTON^S AGAMMAGLOBULINAEMIA
     Route: 042
     Dates: start: 1993, end: 1994

REACTIONS (1)
  - Hepatitis C [Recovered/Resolved]
